FAERS Safety Report 11532851 (Version 1)
Quarter: 2015Q3

REPORT INFORMATION
  Report Type: Other
  Country: GB (occurrence: GB)
  Receive Date: 20150921
  Receipt Date: 20150921
  Transmission Date: 20151125
  Serious: Yes (Hospitalization)
  Sender: FDA-Public Use
  Company Number: GB-MYLANLABS-2015M1030723

PATIENT

DRUGS (4)
  1. SANDOZ LTD CLOPIDOGREL [Suspect]
     Active Substance: CLOPIDOGREL HYDROCHLORIDE
     Dosage: UNK
  2. ATORVASTATIN [Suspect]
     Active Substance: ATORVASTATIN
     Indication: HYPERCHOLESTEROLAEMIA
     Dosage: 40 MG, BID (10 MG, DAILY)
     Route: 048
  3. BISOPROLOL [Suspect]
     Active Substance: BISOPROLOL
     Dosage: 1.25 MG, UNK (1.25 MG, UNK)
  4. ASPIRIN                            /00002701/ [Suspect]
     Active Substance: ASPIRIN
     Dosage: 75 MG, UNK

REACTIONS (4)
  - Cardiac disorder [Recovered/Resolved]
  - Drug ineffective [Recovered/Resolved]
  - Dyspnoea [Unknown]
  - Prinzmetal angina [Recovered/Resolved]

NARRATIVE: CASE EVENT DATE: 20150523
